FAERS Safety Report 7353894-4 (Version None)
Quarter: 2011Q1

REPORT INFORMATION
  Report Type: 
  Country: None (occurrence: None)
  Receive Date: 20110315
  Receipt Date: 20101105
  Transmission Date: 20110831
  Serious: No
  Sender: FDA-Public Use
  Company Number: US-BAYER-201023545BCC

PATIENT
  Sex: Female

DRUGS (2)
  1. CITRACAL MAXIMUM [Suspect]
     Indication: VITAMIN SUPPLEMENTATION
     Route: 048
  2. ASPIRIN [Suspect]
     Route: 048

REACTIONS (1)
  - ABDOMINAL PAIN UPPER [None]
